FAERS Safety Report 6249261-7 (Version None)
Quarter: 2009Q2

REPORT INFORMATION
  Report Type: 
  Country: None (occurrence: None)
  Receive Date: 20090629
  Receipt Date: 20090616
  Transmission Date: 20091009
  Serious: Yes (Other)
  Sender: FDA-Public Use
  Company Number: JP-MERCK-0906USA04037

PATIENT
  Age: 80 Year
  Sex: Male

DRUGS (4)
  1. PRIMAXIN [Suspect]
     Indication: PNEUMONIA
     Route: 042
     Dates: start: 20090611, end: 20090617
  2. FLUCONAZOLE [Suspect]
     Indication: FUNGAL INFECTION
     Route: 042
     Dates: start: 20090615, end: 20090615
  3. MINOCYCLINE HYDROCHLORIDE [Concomitant]
     Indication: PNEUMONIA
     Route: 042
     Dates: start: 20090611, end: 20090615
  4. HUMALOG [Concomitant]
     Indication: DIABETES MELLITUS
     Route: 058
     Dates: start: 20090611

REACTIONS (2)
  - DRUG INTERACTION [None]
  - HYPOGLYCAEMIA [None]
